FAERS Safety Report 24769425 (Version 1)
Quarter: 2024Q4

REPORT INFORMATION
  Report Type: Spontaneous
  Country: US (occurrence: US)
  Receive Date: 20241224
  Receipt Date: 20241224
  Transmission Date: 20250114
  Serious: No
  Sender: PAREXEL
  Company Number: US-NORIDC PHARMA, INC-2024US004011

PATIENT

DRUGS (1)
  1. TIMOLOL MALEATE [Suspect]
     Active Substance: TIMOLOL MALEATE
     Indication: Glaucoma
     Dosage: UNK 1 DROP IN EACH EYE FOR AT LEAST 5 YEARS
     Route: 047
     Dates: start: 20241026

REACTIONS (3)
  - Eye irritation [Recovered/Resolved]
  - Thermal burn [Recovered/Resolved]
  - Ocular hyperaemia [Recovered/Resolved]

NARRATIVE: CASE EVENT DATE: 20241026
